FAERS Safety Report 5899536-6 (Version None)
Quarter: 2008Q3

REPORT INFORMATION
  Report Type: 
  Country: None (occurrence: None)
  Receive Date: 20080926
  Receipt Date: 20080826
  Transmission Date: 20090109
  Serious: No
  Sender: FDA-Public Use
  Company Number: US-BAYER-200832669NA

PATIENT
  Sex: Female

DRUGS (5)
  1. AVELOX [Suspect]
     Indication: DRUG USE FOR UNKNOWN INDICATION
     Dosage: TOTAL DAILY DOSE: 400 MG  UNIT DOSE: 400 MG
  2. WARFARIN SODIUM [Concomitant]
  3. ENALAPRIL MALEATE [Concomitant]
  4. DIGOXIN [Concomitant]
  5. CRESTOR [Concomitant]

REACTIONS (4)
  - HYPERSENSITIVITY [None]
  - OEDEMA PERIPHERAL [None]
  - RASH [None]
  - URTICARIA [None]
